FAERS Safety Report 16178496 (Version 1)
Quarter: 2019Q2

REPORT INFORMATION
  Report Type: Spontaneous
  Country: IT (occurrence: IT)
  Receive Date: 20190410
  Receipt Date: 20190410
  Transmission Date: 20190711
  Serious: Yes (Other)
  Sender: FDA-Public Use
  Company Number: IT-ROCHE-2296016

PATIENT
  Age: 82 Year
  Sex: Male

DRUGS (3)
  1. COBIMETINIB. [Suspect]
     Active Substance: COBIMETINIB
     Indication: METASTATIC MALIGNANT MELANOMA
     Route: 048
     Dates: start: 201803, end: 201806
  2. CARDIOASPIRIN [Concomitant]
     Active Substance: ASPIRIN
     Indication: HYPERTENSION
  3. VEMURAFENIB. [Suspect]
     Active Substance: VEMURAFENIB
     Indication: METASTATIC MALIGNANT MELANOMA
     Route: 048
     Dates: start: 201803

REACTIONS (6)
  - Aphthous ulcer [Unknown]
  - Erythema [Unknown]
  - Hypercreatininaemia [Unknown]
  - Hypercholesterolaemia [Unknown]
  - Rash papular [Recovered/Resolved]
  - Ejection fraction decreased [Not Recovered/Not Resolved]
